FAERS Safety Report 9386975 (Version 1)
Quarter: 2013Q3

REPORT INFORMATION
  Report Type: Spontaneous
  Country: GB (occurrence: GB)
  Receive Date: 20130708
  Receipt Date: 20130708
  Transmission Date: 20140515
  Serious: Yes (Other)
  Sender: FDA-Public Use
  Company Number: GB-UCBSA-090744

PATIENT
  Sex: Female
  Weight: 64.3 kg

DRUGS (3)
  1. KEPPRA [Suspect]
  2. FOLIC ACID [Concomitant]
     Dosage: UNKNOWN
  3. FLUOXETINE [Concomitant]
     Dosage: UNKNOWN

REACTIONS (3)
  - Convulsion [Unknown]
  - Complication of pregnancy [Unknown]
  - Pregnancy [Recovered/Resolved]
